FAERS Safety Report 19106905 (Version 2)
Quarter: 2021Q2

REPORT INFORMATION
  Report Type: Spontaneous
  Country: SI (occurrence: SI)
  Receive Date: 20210408
  Receipt Date: 20210423
  Transmission Date: 20210717
  Serious: Yes (Other)
  Sender: FDA-Public Use
  Company Number: SI-JNJFOC-20210409937

PATIENT
  Age: 90 Year
  Sex: Male

DRUGS (9)
  1. PANTOPRAZOLE [Concomitant]
     Active Substance: PANTOPRAZOLE
     Dosage: 40 MG
  2. ENAP HL [Concomitant]
     Dosage: 10/12.5 MG IN THE MORNING
  3. COMBODART [Concomitant]
     Active Substance: DUTASTERIDE\TAMSULOSIN
  4. XARELTO [Suspect]
     Active Substance: RIVAROXABAN
     Indication: PRODUCT USED FOR UNKNOWN INDICATION
     Dosage: 15 MG
     Route: 048
     Dates: end: 201907
  5. ENALAPRIL [Concomitant]
     Active Substance: ENALAPRIL
     Dosage: 10 MG, EVENING
  6. LANITOP [Concomitant]
     Active Substance: METILDIGOXIN
  7. PROSTIDE [BICALUTAMIDE] [Concomitant]
     Dosage: 5 MG
  8. XARELTO [Suspect]
     Active Substance: RIVAROXABAN
     Dosage: 15 MG
     Route: 048
     Dates: start: 201907
  9. OMNIC OCAS [Concomitant]
     Active Substance: TAMSULOSIN HYDROCHLORIDE
     Dosage: 0.4 MG

REACTIONS (2)
  - Rectal adenocarcinoma [Unknown]
  - Haematochezia [Unknown]

NARRATIVE: CASE EVENT DATE: 201610
